FAERS Safety Report 6456340-8 (Version None)
Quarter: 2009Q4

REPORT INFORMATION
  Report Type: 
  Country: None (occurrence: None)
  Receive Date: 20091125
  Receipt Date: 20091112
  Transmission Date: 20100525
  Serious: Yes (Hospitalization)
  Sender: FDA-Public Use
  Company Number: CA-AMGEN-US349556

PATIENT
  Sex: Male
  Weight: 95.3 kg

DRUGS (9)
  1. ENBREL [Suspect]
     Indication: PSORIASIS
     Route: 058
     Dates: start: 20060921, end: 20090528
  2. DOVOBET [Concomitant]
     Route: 061
     Dates: start: 20060112
  3. DOVOBET [Concomitant]
     Route: 061
     Dates: start: 20090714
  4. BETAMETHASONE VALERATE [Concomitant]
     Route: 061
     Dates: start: 20070829
  5. CETIRIZINE HYDROCHLORIDE [Concomitant]
     Route: 048
     Dates: start: 20080612
  6. TYLENOL (CAPLET) [Concomitant]
     Route: 048
     Dates: start: 20090528
  7. DIAMICRON [Concomitant]
     Route: 048
     Dates: start: 20090612
  8. METFORMIN HCL [Concomitant]
     Dates: start: 20090612
  9. CALCIUM [Concomitant]
     Route: 048
     Dates: start: 20090601

REACTIONS (2)
  - MENINGITIS LISTERIA [None]
  - TYPE 2 DIABETES MELLITUS [None]
